FAERS Safety Report 11607817 (Version 1)
Quarter: 2015Q3

REPORT INFORMATION
  Report Type: Spontaneous
  Country: US (occurrence: US)
  Receive Date: 20150916
  Receipt Date: 20150916
  Transmission Date: 20151125
  Serious: No
  Sender: FDA-Public Use
  Company Number: US-ELI_LILLY_AND_COMPANY-US201312006738

PATIENT
  Sex: Male

DRUGS (2)
  1. LANTUS [Concomitant]
     Active Substance: INSULIN GLARGINE
     Dosage: 40 U, EACH EVENING
  2. HUMALOG [Suspect]
     Active Substance: INSULIN LISPRO
     Indication: TYPE 2 DIABETES MELLITUS
     Dosage: 15 U, UNK
     Route: 065
     Dates: start: 201312

REACTIONS (9)
  - Chest pain [Unknown]
  - Mood swings [Not Recovered/Not Resolved]
  - Dyspnoea [Unknown]
  - Aggression [Unknown]
  - Blood glucose decreased [Unknown]
  - Agitation [Unknown]
  - Fatigue [Unknown]
  - Blood glucose fluctuation [Unknown]
  - Personality change [Not Recovered/Not Resolved]

NARRATIVE: CASE EVENT DATE: 201312
